FAERS Safety Report 7332565-4 (Version None)
Quarter: 2011Q1

REPORT INFORMATION
  Report Type: 
  Country: None (occurrence: None)
  Receive Date: 20110304
  Receipt Date: 20110221
  Transmission Date: 20110831
  Serious: Yes (Other)
  Sender: FDA-Public Use
  Company Number: PHHY2011DE14350

PATIENT
  Age: 64 Year
  Sex: Female

DRUGS (5)
  1. ZOMETA [Suspect]
     Indication: BREAST CANCER
     Dosage: 4 MG, UNK
     Route: 042
  2. ZOMETA [Interacting]
     Dosage: 4 MG, UNK
     Route: 042
     Dates: start: 20100901
  3. AMLODIPINE [Concomitant]
     Indication: HYPERTENSION
  4. AROMASIN [Interacting]
     Dosage: UNK
     Route: 048
     Dates: start: 20050101
  5. ZYLORIC [Concomitant]

REACTIONS (2)
  - EOSINOPHIL COUNT INCREASED [None]
  - HEPATITIS TOXIC [None]
